FAERS Safety Report 7952563-7 (Version None)
Quarter: 2011Q4

REPORT INFORMATION
  Report Type: 
  Country: None (occurrence: None)
  Receive Date: 20111201
  Receipt Date: 20111128
  Transmission Date: 20120403
  Serious: Yes (Hospitalization)
  Sender: FDA-Public Use
  Company Number: GXKR2011DE003463

PATIENT

DRUGS (2)
  1. MIRTAZAPINE [Suspect]
     Indication: DEPRESSION
     Dosage: 15 MG, UNK
     Route: 048
  2. ZOPICLONE [Suspect]
     Indication: DEPRESSION
     Dosage: 7.5 MG, UNK
     Route: 048

REACTIONS (1)
  - RHABDOMYOLYSIS [None]
